FAERS Safety Report 8181580-X (Version None)
Quarter: 2012Q1

REPORT INFORMATION
  Report Type: 
  Country: None (occurrence: None)
  Receive Date: 20120301
  Receipt Date: 20120301
  Transmission Date: 20120608
  Serious: Yes (Hospitalization)
  Sender: FDA-Public Use
  Company Number: None

PATIENT
  Age: 54 Year
  Sex: Male
  Weight: 77.3 kg

DRUGS (2)
  1. METOCLOPRAMIDE [Suspect]
     Indication: NAUSEA
     Dosage: 10 MG ONCE IM
     Route: 030
     Dates: start: 20110907, end: 20110907
  2. PROMETHAZINE [Suspect]
     Indication: NAUSEA
     Dosage: 25 MG ONCE PO
     Route: 048
     Dates: start: 20110907, end: 20110907

REACTIONS (3)
  - ANAPHYLACTIC REACTION [None]
  - BLOOD PRESSURE SYSTOLIC INCREASED [None]
  - DRUG DOSE OMISSION [None]
